FAERS Safety Report 7449628-5 (Version None)
Quarter: 2011Q1

REPORT INFORMATION
  Report Type: 
  Country: None (occurrence: None)
  Receive Date: 20110302
  Receipt Date: 20101111
  Transmission Date: 20110831
  Serious: No
  Sender: FDA-Public Use
  Company Number: 021980

PATIENT
  Sex: Female
  Weight: 65.8 kg

DRUGS (7)
  1. CIMZIA [Suspect]
     Indication: CROHN'S DISEASE
     Dosage: 400 MG 1X/MONTH SUBCUTANEOUS
     Route: 058
     Dates: start: 20100601
  2. ATROPINE W/DIPHENOXYLATE [Concomitant]
  3. ABILIFY [Concomitant]
  4. CYMBALTA [Concomitant]
  5. MIRAPEX [Concomitant]
  6. TRAZODONE HCL [Concomitant]
  7. BENADRYL [Concomitant]

REACTIONS (2)
  - MIDDLE INSOMNIA [None]
  - HOT FLUSH [None]
